FAERS Safety Report 13355559 (Version 4)
Quarter: 2017Q2

REPORT INFORMATION
  Report Type: Spontaneous
  Country: US (occurrence: US)
  Receive Date: 20170321
  Receipt Date: 20170407
  Transmission Date: 20170830
  Serious: Yes (Death, Hospitalization, Other)
  Sender: FDA-Public Use
  Company Number: US-PFIZER INC-2017114100

PATIENT
  Age: 69 Year
  Sex: Female
  Weight: 81.63 kg

DRUGS (2)
  1. IBRANCE [Suspect]
     Active Substance: PALBOCICLIB
     Dosage: 125 MG, CYCLIC (DAY 1-21 Q 28 DAYS)
     Route: 048
     Dates: start: 20170214
  2. IBRANCE [Suspect]
     Active Substance: PALBOCICLIB
     Indication: BREAST CANCER METASTATIC
     Dosage: 125 MG, CYCLIC (DAY 1-21 Q 28 DAYS)
     Route: 048
     Dates: start: 20170214, end: 2017

REACTIONS (24)
  - Pneumonia [Unknown]
  - Drug dose omission [Unknown]
  - Fatigue [Unknown]
  - Peripheral coldness [Unknown]
  - Dyspnoea [Unknown]
  - Cough [Unknown]
  - Pain [Unknown]
  - Pulmonary oedema [Unknown]
  - Laziness [Unknown]
  - Rib fracture [Unknown]
  - Fluid retention [Unknown]
  - Peripheral swelling [Unknown]
  - Death [Fatal]
  - Lip discolouration [Unknown]
  - Decubitus ulcer [Unknown]
  - Pulmonary haemorrhage [Unknown]
  - Nausea [Unknown]
  - Eating disorder [Unknown]
  - Bedridden [Unknown]
  - Fall [Unknown]
  - Muscular weakness [Unknown]
  - Neoplasm progression [Unknown]
  - Seizure [Unknown]
  - Dizziness [Unknown]

NARRATIVE: CASE EVENT DATE: 2017
